FAERS Safety Report 9689499 (Version 1)
Quarter: 2013Q4

REPORT INFORMATION
  Report Type: Spontaneous
  Country: US (occurrence: US)
  Receive Date: 20131114
  Receipt Date: 20131114
  Transmission Date: 20140711
  Serious: No
  Sender: FDA-Public Use
  Company Number: US-009507513-1311USA002970

PATIENT
  Age: 27 Year
  Sex: Female

DRUGS (2)
  1. STROMECTOL [Suspect]
     Indication: HELMINTHIC INFECTION
     Dosage: 3 MG, UNK
     Route: 048
     Dates: start: 20131004, end: 20131017
  2. ARMOUR THYROID TABLETS [Concomitant]

REACTIONS (2)
  - Nausea [Recovered/Resolved]
  - Dizziness [Recovered/Resolved]
